FAERS Safety Report 7234385-8 (Version None)
Quarter: 2011Q1

REPORT INFORMATION
  Report Type: 
  Country: None (occurrence: None)
  Receive Date: 20110119
  Receipt Date: 20110105
  Transmission Date: 20110831
  Serious: No
  Sender: FDA-Public Use
  Company Number: US-B.I. PHARMACEUTICALS,INC./RIDGEFIELD-2010-BP-12778BP

PATIENT
  Sex: Male

DRUGS (5)
  1. SPIRIVA [Suspect]
     Indication: ASTHMA
     Dosage: 18 MCG
     Route: 055
     Dates: start: 20101025, end: 20101029
  2. ALBUTEROL [Concomitant]
     Indication: ASTHMA
  3. PROAIR HFA [Concomitant]
     Indication: ASTHMA
  4. PRAVASTATIN [Concomitant]
  5. GLIPIZIDE [Concomitant]
     Indication: DIABETES MELLITUS

REACTIONS (6)
  - HYPERTENSION [None]
  - HORDEOLUM [None]
  - HEADACHE [None]
  - VISION BLURRED [None]
  - EYE PAIN [None]
  - INSOMNIA [None]
